FAERS Safety Report 20407119 (Version 1)
Quarter: 2022Q1

REPORT INFORMATION
  Report Type: Report from Study
  Country: CA (occurrence: CA)
  Receive Date: 20220131
  Receipt Date: 20220131
  Transmission Date: 20220423
  Serious: Yes (Other)
  Sender: FDA-Public Use
  Company Number: CA-BAUSCH-BL-2022-002528

PATIENT
  Age: 48 Year
  Sex: Female

DRUGS (18)
  1. DIAZEPAM [Suspect]
     Active Substance: DIAZEPAM
     Indication: Product used for unknown indication
     Route: 065
  2. AUBAGIO [Suspect]
     Active Substance: TERIFLUNOMIDE
     Indication: Multiple sclerosis relapse
     Route: 048
  3. CLONAZEPAM [Suspect]
     Active Substance: CLONAZEPAM
     Indication: Anxiety
     Route: 065
  4. CANNABIDIOL [Concomitant]
     Active Substance: CANNABIDIOL
     Indication: Anxiety
     Route: 065
  5. AVAPRO [Concomitant]
     Active Substance: IRBESARTAN
     Indication: Tremor
     Route: 065
  6. AVAPRO [Concomitant]
     Active Substance: IRBESARTAN
     Indication: Pain in extremity
     Route: 065
  7. AVAPRO [Concomitant]
     Active Substance: IRBESARTAN
     Indication: Migraine
  8. AVAPRO [Concomitant]
     Active Substance: IRBESARTAN
     Indication: Depression
  9. AVAPRO [Concomitant]
     Active Substance: IRBESARTAN
     Indication: Blood pressure measurement
  10. AVAPRO [Concomitant]
     Active Substance: IRBESARTAN
     Indication: Anxiety
  11. BACLOFEN [Concomitant]
     Active Substance: BACLOFEN
     Indication: Muscle spasms
     Route: 048
  12. CANNABIS SATIVA FLOWERING TOP [Concomitant]
     Active Substance: CANNABIS SATIVA FLOWERING TOP
     Indication: Tremor
     Route: 048
  13. CANNABIS SATIVA FLOWERING TOP [Concomitant]
     Active Substance: CANNABIS SATIVA FLOWERING TOP
     Indication: Pain in extremity
     Route: 065
  14. CYANOCOBALAMIN [Concomitant]
     Active Substance: CYANOCOBALAMIN
     Indication: Product used for unknown indication
     Route: 065
  15. SERTRALINE HYDROCHLORIDE [Concomitant]
     Active Substance: SERTRALINE HYDROCHLORIDE
     Indication: Depression
     Route: 048
  16. VITAMIN B1 [Concomitant]
     Active Substance: THIAMINE HYDROCHLORIDE
     Indication: Product used for unknown indication
     Route: 065
  17. VITAMINS NOS [Concomitant]
     Active Substance: VITAMINS
     Indication: Supplementation therapy
     Route: 048
  18. VITAMIN D NOS [Concomitant]
     Active Substance: VITAMIN D NOS
     Indication: Supplementation therapy
     Dosage: VITAMIN D
     Route: 048

REACTIONS (18)
  - Anxiety [Not Recovered/Not Resolved]
  - Headache [Not Recovered/Not Resolved]
  - Cough [Not Recovered/Not Resolved]
  - Rhinorrhoea [Not Recovered/Not Resolved]
  - Pain in extremity [Not Recovered/Not Resolved]
  - Dry mouth [Not Recovered/Not Resolved]
  - Eye pain [Not Recovered/Not Resolved]
  - Feeling abnormal [Not Recovered/Not Resolved]
  - Feeling hot [Not Recovered/Not Resolved]
  - Hypertension [Not Recovered/Not Resolved]
  - Hysterectomy [Not Recovered/Not Resolved]
  - Myocardial infarction [Not Recovered/Not Resolved]
  - Pyrexia [Not Recovered/Not Resolved]
  - Respiratory disorder [Not Recovered/Not Resolved]
  - Thirst [Not Recovered/Not Resolved]
  - Tremor [Not Recovered/Not Resolved]
  - COVID-19 [Not Recovered/Not Resolved]
  - Drug interaction [Not Recovered/Not Resolved]
